FAERS Safety Report 20932595 (Version 1)
Quarter: 2022Q2

REPORT INFORMATION
  Report Type: Spontaneous
  Country: AU (occurrence: AU)
  Receive Date: 20220608
  Receipt Date: 20220608
  Transmission Date: 20220721
  Serious: Yes (Hospitalization)
  Sender: FDA-Public Use
  Company Number: AU-GENERIC HEALTH PTY. LTD.-2022-08180

PATIENT
  Age: 7 Decade
  Sex: Female

DRUGS (17)
  1. PREGABALIN [Suspect]
     Active Substance: PREGABALIN
     Indication: Cutaneous calcification
     Dosage: 150 MG, QD, IN THE MORNING
     Route: 065
  2. PREGABALIN [Suspect]
     Active Substance: PREGABALIN
     Indication: Analgesic therapy
     Dosage: 300 MG, QD,  IN THE NIGHT
     Route: 065
  3. AMITRIPTYLINE [Suspect]
     Active Substance: AMITRIPTYLINE
     Indication: Cutaneous calcification
     Dosage: 75 MG, QD, IN THE NIGHT
     Route: 065
  4. AMITRIPTYLINE [Suspect]
     Active Substance: AMITRIPTYLINE
     Indication: Analgesic therapy
  5. CELECOXIB [Suspect]
     Active Substance: CELECOXIB
     Indication: Cutaneous calcification
     Dosage: 200 MG, QD
     Route: 065
  6. CELECOXIB [Suspect]
     Active Substance: CELECOXIB
     Indication: Analgesic therapy
  7. CLOBETASOL PROPIONATE [Suspect]
     Active Substance: CLOBETASOL PROPIONATE
     Indication: Cutaneous calcification
     Dosage: UNK
     Route: 061
  8. SODIUM THIOSULFATE [Suspect]
     Active Substance: SODIUM THIOSULFATE
     Indication: Cutaneous calcification
     Dosage: UNK
     Route: 026
  9. TACROLIMUS [Suspect]
     Active Substance: TACROLIMUS
     Indication: Cutaneous calcification
     Dosage: UNK
     Route: 061
  10. PREDNISOLONE [Suspect]
     Active Substance: PREDNISOLONE
     Indication: Cutaneous calcification
     Dosage: 50 MG, WITH THE HIGHEST DOSE OF 50MG THAT WAS WEANED OVER 2-3 WEEKS
     Route: 048
  11. DILTIAZEM [Suspect]
     Active Substance: DILTIAZEM
     Indication: Cutaneous calcification
     Dosage: 180 MG, BID
     Route: 048
  12. COLCHICINE [Suspect]
     Active Substance: COLCHICINE
     Indication: Cutaneous calcification
     Dosage: 0.5 MG, TID, INTERVAL: THREE TIMES A DAY
     Route: 065
  13. SODIUM THIOSULFATE [Suspect]
     Active Substance: SODIUM THIOSULFATE
     Indication: Cutaneous calcification
     Dosage: UNK
     Route: 061
  14. SODIUM THIOSULFATE [Suspect]
     Active Substance: SODIUM THIOSULFATE
     Indication: Cutaneous calcification
     Dosage: UNK, 250MG/ML SOLUTION WAS INJECTED ()INTO THE BASES OF CALCIFICATIONS ON EACH FINGER)
     Route: 065
  15. METHOTREXATE [Concomitant]
     Active Substance: METHOTREXATE
     Indication: Eosinophilic fasciitis
     Dosage: 30 MG, WEEKLY
     Route: 065
  16. CHLORHEXIDINE [Concomitant]
     Active Substance: CHLORHEXIDINE
     Indication: Cutaneous calcification
     Dosage: UNK
     Route: 065
  17. LIDOCAINE [Concomitant]
     Active Substance: LIDOCAINE
     Indication: Nerve block
     Dosage: 5 MILLILITER
     Route: 065

REACTIONS (3)
  - Staphylococcal infection [Recovering/Resolving]
  - Drug ineffective for unapproved indication [Unknown]
  - Off label use [Unknown]
